FAERS Safety Report 14305040 (Version 1)
Quarter: 2017Q4

REPORT INFORMATION
  Report Type: Spontaneous
  Country: JP (occurrence: JP)
  Receive Date: 20171219
  Receipt Date: 20171219
  Transmission Date: 20180321
  Serious: Yes (Hospitalization)
  Sender: FDA-Public Use
  Company Number: JP-OTSUKA-000203

PATIENT
  Age: 26 Year
  Sex: Male

DRUGS (1)
  1. ABILIFY [Suspect]
     Active Substance: ARIPIPRAZOLE
     Indication: SCHIZOPHRENIA
     Dosage: 3 MG, TID
     Route: 048
     Dates: start: 200710

REACTIONS (2)
  - Neuropathy peripheral [Recovered/Resolved]
  - Psychiatric symptom [Unknown]

NARRATIVE: CASE EVENT DATE: 200710
